FAERS Safety Report 23062925 (Version 4)
Quarter: 2023Q4

REPORT INFORMATION
  Report Type: Spontaneous
  Country: US (occurrence: US)
  Receive Date: 20231013
  Receipt Date: 20231124
  Transmission Date: 20240109
  Serious: No
  Sender: FDA-Public Use
  Company Number: US-GSKCCFUS-Case-01823099_AE-101960

PATIENT
  Sex: Female
  Weight: 291 kg

DRUGS (1)
  1. ADVAIR DISKUS [Suspect]
     Active Substance: FLUTICASONE PROPIONATE\SALMETEROL XINAFOATE
     Indication: Asthma
     Dosage: UNK, 250/50MCG
     Route: 055
     Dates: start: 20230929

REACTIONS (4)
  - Cough [Unknown]
  - Retching [Unknown]
  - Nausea [Unknown]
  - Product complaint [Unknown]
